FAERS Safety Report 7407977-0 (Version None)
Quarter: 2011Q2

REPORT INFORMATION
  Report Type: 
  Country: None (occurrence: None)
  Receive Date: 20110412
  Receipt Date: 20110407
  Transmission Date: 20111010
  Serious: No
  Sender: FDA-Public Use
  Company Number: US-PFIZER INC-2011077504

PATIENT
  Sex: Female
  Weight: 68.027 kg

DRUGS (2)
  1. CORDARONE [Suspect]
     Dosage: 200 MG, 1X/DAY
     Route: 048
     Dates: start: 20110301
  2. CORDARONE [Suspect]
     Dosage: 400 MG, 2X/DAY
     Route: 048
     Dates: start: 20110401

REACTIONS (4)
  - DYSGEUSIA [None]
  - NAUSEA [None]
  - VOMITING [None]
  - TREMOR [None]
